FAERS Safety Report 10917817 (Version 2)
Quarter: 2015Q2

REPORT INFORMATION
  Report Type: Spontaneous
  Country: US (occurrence: US)
  Receive Date: 20150316
  Receipt Date: 20150421
  Transmission Date: 20150821
  Serious: No
  Sender: FDA-Public Use
  Company Number: US-009507513-1503USA006673

PATIENT
  Age: 37 Year
  Sex: Female
  Weight: 97.51 kg

DRUGS (1)
  1. BELSOMRA [Suspect]
     Active Substance: SUVOREXANT
     Indication: INSOMNIA
     Dosage: 10 MG, ONE TIME DOSE
     Route: 048
     Dates: start: 20150305, end: 201503

REACTIONS (3)
  - Poor quality sleep [Recovered/Resolved]
  - Hypervigilance [Recovered/Resolved]
  - Agitation [Recovered/Resolved]

NARRATIVE: CASE EVENT DATE: 20150305
